FAERS Safety Report 10274262 (Version 3)
Quarter: 2014Q4

REPORT INFORMATION
  Report Type: Spontaneous
  Country: US (occurrence: US)
  Receive Date: 20140702
  Receipt Date: 20141124
  Transmission Date: 20150528
  Serious: No
  Sender: FDA-Public Use
  Company Number: US-PFIZER INC-2014175300

PATIENT
  Age: 78 Year
  Sex: Female

DRUGS (1)
  1. SUTENT [Suspect]
     Active Substance: SUNITINIB MALATE
     Indication: THYROID CANCER
     Dosage: 37.5 MG (1 CAPSULE OF 25 MG PLUS 1 CAPSULE OF 12.5 MG), CYCLIC: DAILY,4 WEEKS ON/2 WEEKS OFF
     Route: 048
     Dates: start: 20140515

REACTIONS (2)
  - Product use issue [Not Recovered/Not Resolved]
  - Rash macular [Unknown]

NARRATIVE: CASE EVENT DATE: 20140515
